FAERS Safety Report 13076883 (Version 1)
Quarter: 2016Q4

REPORT INFORMATION
  Report Type: Spontaneous
  Country: CH (occurrence: CH)
  Receive Date: 20161230
  Receipt Date: 20161230
  Transmission Date: 20170207
  Serious: Yes (Hospitalization)
  Sender: FDA-Public Use
  Company Number: CH-PFIZER INC-2016591097

PATIENT
  Age: 29 Year
  Sex: Female

DRUGS (8)
  1. MINALGIN [Suspect]
     Active Substance: METAMIZOLE
     Dosage: 500 MG, 3X/DAY
     Route: 048
     Dates: start: 20160928, end: 20161030
  2. CO-AMOXI [Suspect]
     Active Substance: AMOXICILLIN\CLAVULANATE POTASSIUM
     Indication: MASTOIDITIS
     Dosage: UNK
     Route: 048
     Dates: start: 20160927, end: 20161006
  3. LYRICA [Suspect]
     Active Substance: PREGABALIN
     Indication: TRIGEMINAL NEURALGIA
     Dosage: 5 MG, 3X/DAY
     Route: 048
     Dates: start: 20160929, end: 20161006
  4. SIRDALUD [Suspect]
     Active Substance: TIZANIDINE
     Indication: TRIGEMINAL NEURALGIA
     Dosage: UNK
     Route: 048
     Dates: start: 20160928, end: 20161030
  5. ESOMEP [Suspect]
     Active Substance: ESOMEPRAZOLE
     Dosage: 1 DF, 1X/DAY
     Route: 048
     Dates: start: 20160927, end: 20161030
  6. ESOMEP [Suspect]
     Active Substance: ESOMEPRAZOLE
     Dosage: 1 DF, 1X/DAY
     Dates: start: 20161108
  7. ZALDIAR [Suspect]
     Active Substance: ACETAMINOPHEN\TRAMADOL HYDROCHLORIDE
     Dosage: 1 DF, SINGLE
     Route: 048
     Dates: start: 20160927
  8. TEGRETOL [Suspect]
     Active Substance: CARBAMAZEPINE
     Indication: TRIGEMINAL NEURALGIA
     Dosage: 300 MG, 3X/DAY
     Route: 048
     Dates: start: 20161006, end: 20161030

REACTIONS (16)
  - Drug reaction with eosinophilia and systemic symptoms [Recovering/Resolving]
  - Hepatocellular injury [Recovering/Resolving]
  - Pruritus [Recovered/Resolved]
  - Rash maculo-papular [Recovered/Resolved]
  - Eosinophilia [Recovered/Resolved]
  - Human herpesvirus 6 infection [Unknown]
  - Abdominal pain upper [Recovered/Resolved]
  - Diarrhoea [Recovered/Resolved]
  - Pyrexia [Recovered/Resolved]
  - Dysphagia [Recovered/Resolved]
  - Lymphocytosis [Not Recovered/Not Resolved]
  - Lymphadenopathy [Unknown]
  - Face oedema [Recovered/Resolved]
  - Nausea [Recovered/Resolved]
  - Vomiting [Recovered/Resolved]
  - Cough [Recovered/Resolved]

NARRATIVE: CASE EVENT DATE: 2016
